FAERS Safety Report 18638943 (Version 8)
Quarter: 2023Q4

REPORT INFORMATION
  Report Type: Spontaneous
  Country: US (occurrence: US)
  Receive Date: 20201218
  Receipt Date: 20231106
  Transmission Date: 20240110
  Serious: No
  Sender: FDA-Public Use
  Company Number: US-PFIZER INC-2020500861

PATIENT
  Age: 56 Year
  Sex: Female

DRUGS (9)
  1. IBRANCE [Suspect]
     Active Substance: PALBOCICLIB
     Dosage: 100 MG, CYCLIC QD (21 DAYS)
     Dates: start: 20201218
  2. IBRANCE [Suspect]
     Active Substance: PALBOCICLIB
     Dosage: 75 MG, CYCLIC (DAILY FOR 21 DAYS, THEN 7 DAYS OFF. REPEAT EVERY 28 DAYS)
     Route: 048
     Dates: start: 20211029
  3. TRAMADOL HCL [Concomitant]
     Active Substance: TRAMADOL HYDROCHLORIDE
     Dosage: UNK
  4. PANTOPRAZOLE SODIUM [Concomitant]
     Active Substance: PANTOPRAZOLE SODIUM
     Dosage: UNK
  5. ACETAMINOPHEN\HYDROCODONE [Concomitant]
     Active Substance: ACETAMINOPHEN\HYDROCODONE
     Dosage: UNK
  6. ADVIL [Concomitant]
     Active Substance: IBUPROFEN
     Dosage: UNK
  7. PEPTO-BISMOL [Concomitant]
     Active Substance: BISMUTH SUBSALICYLATE
     Dosage: UNK
  8. IBUPROFEN [Concomitant]
     Active Substance: IBUPROFEN
     Dosage: UNK
  9. SERTRALINE [Concomitant]
     Active Substance: SERTRALINE HYDROCHLORIDE
     Dosage: UNK

REACTIONS (10)
  - White blood cell count decreased [Not Recovered/Not Resolved]
  - Arthritis [Not Recovered/Not Resolved]
  - COVID-19 [Recovering/Resolving]
  - Red blood cell count decreased [Unknown]
  - Diarrhoea [Unknown]
  - Somnolence [Not Recovered/Not Resolved]
  - Wound infection [Unknown]
  - Illness [Unknown]
  - Pyrexia [Unknown]
  - Intentional dose omission [Unknown]

NARRATIVE: CASE EVENT DATE: 20230101
